FAERS Safety Report 7297342-1 (Version None)
Quarter: 2011Q1

REPORT INFORMATION
  Report Type: 
  Country: None (occurrence: None)
  Receive Date: 20110216
  Receipt Date: 20110203
  Transmission Date: 20110831
  Serious: Yes (Other)
  Sender: FDA-Public Use
  Company Number: FR-GENENTECH-313657

PATIENT
  Sex: Female

DRUGS (5)
  1. FLUDARA [Suspect]
     Indication: CHRONIC LYMPHOCYTIC LEUKAEMIA
     Dosage: 10 MG, UNK
     Route: 002
     Dates: start: 20080826, end: 20080828
  2. ZELITREX [Concomitant]
     Indication: PRODUCT USED FOR UNKNOWN INDICATION
     Dosage: 500 MG, UNK
     Route: 002
     Dates: start: 20080602
  3. CYCLOPHOSPHAMIDE [Suspect]
     Indication: CHRONIC LYMPHOCYTIC LEUKAEMIA
     Dosage: 50 MG, UNK
     Route: 002
     Dates: start: 20080826, end: 20080828
  4. BACTRIM [Concomitant]
     Indication: PRODUCT USED FOR UNKNOWN INDICATION
     Dosage: UNK
     Route: 002
     Dates: start: 20080602
  5. RITUXIMAB [Suspect]
     Indication: PROLYMPHOCYTIC LEUKAEMIA
     Dosage: 670 MG, QAM
     Route: 041
     Dates: start: 20080826, end: 20080826

REACTIONS (1)
  - SQUAMOUS CELL CARCINOMA [None]
